FAERS Safety Report 5571193-8 (Version None)
Quarter: 2007Q4

REPORT INFORMATION
  Report Type: 
  Country: None (occurrence: None)
  Receive Date: 20071221
  Receipt Date: 20070115
  Transmission Date: 20080405
  Serious: No
  Sender: FDA-Public Use
  Company Number: A0635689A

PATIENT
  Age: 6 Month

DRUGS (1)
  1. FLONASE [Suspect]
     Indication: DRUG USE FOR UNKNOWN INDICATION
     Route: 045

REACTIONS (2)
  - NASAL DISCOMFORT [None]
  - OFF LABEL USE [None]
